FAERS Safety Report 8851966 (Version 2)
Quarter: 2013Q2

REPORT INFORMATION
  Report Type: Spontaneous
  Country: US (occurrence: None)
  Receive Date: 20120426
  Receipt Date: 20120703
  Transmission Date: 20140414
  Serious: No
  Sender: FDA-Public Use
  Company Number: PHEH2012US002284

PATIENT
  Age: 60 Year
  Sex: Female

DRUGS (6)
  1. GILENYA [Suspect]
     Indication: RELAPSING-REMITTING MULTIPLE SCLEROSIS
     Route: 048
     Dates: start: 20120124
  2. LYRICA (PREGABALIN) [Concomitant]
  3. ATIVAN (LORAZEPAM) [Concomitant]
  4. CALCIUM [Concomitant]
  5. MULTIVITAMINS (ASCORBIC ACID, ERGOCALCIFEROL, FOLIC ACID, NICOTINAMIDE, PANTHENOL, RETINOL, RIBOFLAVIN, THIAMINE HYDROCHLORIDE) [Concomitant]
  6. COPPER [Concomitant]

REACTIONS (4)
  - Heart rate decreased [None]
  - Chest discomfort [None]
  - Chest pain [None]
  - Fatigue [None]
